FAERS Safety Report 5309488-5 (Version None)
Quarter: 2007Q2

REPORT INFORMATION
  Report Type: 
  Country: None (occurrence: None)
  Receive Date: 20070424
  Receipt Date: 20070412
  Transmission Date: 20071010
  Serious: Yes (Hospitalization)
  Sender: FDA-Public Use
  Company Number: CERZ-11618

PATIENT
  Age: 48 Year
  Sex: Male
  Weight: 111.1 kg

DRUGS (1)
  1. CEREZYME [Suspect]
     Indication: GAUCHER'S DISEASE
     Dosage: 6000 UNITS Q2WKS IV
     Route: 042
     Dates: start: 19970328

REACTIONS (7)
  - ALCOHOLIC LIVER DISEASE [None]
  - ALCOHOLISM [None]
  - AMNESIA [None]
  - FALL [None]
  - FEMUR FRACTURE [None]
  - OEDEMA PERIPHERAL [None]
  - WRIST FRACTURE [None]
